FAERS Safety Report 9414924 (Version 13)
Quarter: 2020Q3

REPORT INFORMATION
  Report Type: Report from Study
  Country: US (occurrence: US)
  Receive Date: 20130723
  Receipt Date: 20200713
  Transmission Date: 20201103
  Serious: Yes (Hospitalization, Disabling, Other)
  Sender: FDA-Public Use
  Company Number: US-SANOFI-AVENTIS-2013SA072957

PATIENT

DRUGS (6)
  1. TERIFLUNOMIDE. [Suspect]
     Active Substance: TERIFLUNOMIDE
     Dosage: 14 MG,QD
     Route: 048
     Dates: start: 20130927, end: 20140411
  2. TERIFLUNOMIDE. [Suspect]
     Active Substance: TERIFLUNOMIDE
     Dosage: 14 MG,QD
     Route: 048
  3. TERIFLUNOMIDE. [Suspect]
     Active Substance: TERIFLUNOMIDE
     Indication: MULTIPLE SCLEROSIS
     Dosage: 7 MG,QD
     Route: 048
     Dates: start: 20130409, end: 2013
  4. TERIFLUNOMIDE. [Suspect]
     Active Substance: TERIFLUNOMIDE
     Dosage: 7 MG,QD
     Route: 048
     Dates: start: 2013, end: 20130926
  5. TERIFLUNOMIDE. [Suspect]
     Active Substance: TERIFLUNOMIDE
     Dosage: QD
     Route: 048
     Dates: start: 201404, end: 20140418
  6. TERIFLUNOMIDE. [Suspect]
     Active Substance: TERIFLUNOMIDE
     Dosage: 14 MG,QD
     Route: 048
     Dates: start: 2015

REACTIONS (25)
  - Foot fracture [Not Recovered/Not Resolved]
  - Benign bone neoplasm [Unknown]
  - Muscle twitching [Unknown]
  - Swelling face [Unknown]
  - Blindness transient [Recovered/Resolved]
  - Herpes zoster [Unknown]
  - Productive cough [Recovering/Resolving]
  - Walking aid user [Not Recovered/Not Resolved]
  - Hospitalisation [Unknown]
  - Sputum discoloured [Not Recovered/Not Resolved]
  - Post procedural swelling [Unknown]
  - Product dose omission issue [Unknown]
  - Adverse drug reaction [Unknown]
  - Bronchial hyperreactivity [Recovered/Resolved]
  - Multiple sclerosis [Unknown]
  - Nasal congestion [Not Recovered/Not Resolved]
  - Urinary retention postoperative [Unknown]
  - Muscle spasms [Unknown]
  - Asthma [Recovered/Resolved]
  - Postoperative wound infection [Not Recovered/Not Resolved]
  - Seroma [Unknown]
  - Multiple sclerosis relapse [Unknown]
  - Drug ineffective [Unknown]
  - Crohn^s disease [Recovered/Resolved]
  - Unevaluable event [Not Recovered/Not Resolved]

NARRATIVE: CASE EVENT DATE: 201706
